FAERS Safety Report 19021435 (Version 1)
Quarter: 2021Q1

REPORT INFORMATION
  Report Type: Spontaneous
  Country: US (occurrence: US)
  Receive Date: 20210317
  Receipt Date: 20210317
  Transmission Date: 20210420
  Serious: No
  Sender: FDA-Public Use
  Company Number: US-PERRIGO-20US011246

PATIENT
  Age: 70 Year
  Sex: Male
  Weight: 71.66 kg

DRUGS (6)
  1. ITRACONAZOLE. [Concomitant]
     Active Substance: ITRACONAZOLE
     Indication: HISTOPLASMOSIS
     Dosage: UNK
     Route: 065
     Dates: start: 202004
  2. NICOTINE POLACRILEX [Suspect]
     Active Substance: NICOTINE
     Indication: SMOKING CESSATION THERAPY
     Dosage: 4 MG, 10 TO 12 TIMES DAILY
     Route: 002
     Dates: start: 20060131
  3. BENRALIZUMAB. [Concomitant]
     Active Substance: BENRALIZUMAB
     Indication: ASTHMA
     Dosage: UNK
     Route: 065
  4. LISINOPRIL. [Concomitant]
     Active Substance: LISINOPRIL
     Indication: HYPERTENSION
     Dosage: UNK
     Route: 048
  5. ANTIHYPERTENSIVES [Concomitant]
     Active Substance: UNSPECIFIED INGREDIENT
     Indication: HYPERTENSION
     Dosage: UNK
     Route: 065
  6. CRESTOR [Concomitant]
     Active Substance: ROSUVASTATIN CALCIUM
     Indication: BLOOD CHOLESTEROL INCREASED
     Dosage: UNK
     Route: 048
     Dates: start: 202004

REACTIONS (1)
  - Gastric pH increased [Not Recovered/Not Resolved]

NARRATIVE: CASE EVENT DATE: 20200720
